FAERS Safety Report 4805659-2 (Version None)
Quarter: 2005Q4

REPORT INFORMATION
  Report Type: 
  Country: None (occurrence: None)
  Receive Date: 20051021
  Receipt Date: 20050405
  Transmission Date: 20060501
  Serious: Yes (Other)
  Sender: FDA-Public Use
  Company Number: DE-ROCHE-400865

PATIENT
  Age: 41 Year
  Sex: Male
  Weight: 62 kg

DRUGS (6)
  1. PEGASYS [Suspect]
     Route: 058
     Dates: start: 20040215, end: 20050115
  2. COPEGUS [Suspect]
     Route: 048
     Dates: start: 20040215, end: 20040515
  3. COPEGUS [Suspect]
     Route: 048
     Dates: start: 20040515, end: 20050115
  4. COMBIVIR [Concomitant]
     Indication: SYSTEMIC ANTIVIRAL TREATMENT
     Dosage: STRENGTH REPORTED AS 300/600.
     Dates: start: 20001215
  5. VIRAMUNE [Concomitant]
     Indication: SYSTEMIC ANTIVIRAL TREATMENT
     Dosage: STRENGTH REPORTED AS 400.
     Dates: start: 20001215
  6. CITALOPRAM [Concomitant]
     Indication: IRRITABILITY
     Dates: start: 20040715, end: 20050115

REACTIONS (2)
  - BLOOD CHOLESTEROL INCREASED [None]
  - LIPODYSTROPHY ACQUIRED [None]
